FAERS Safety Report 5341816-7 (Version None)
Quarter: 2007Q2

REPORT INFORMATION
  Report Type: 
  Country: None (occurrence: None)
  Receive Date: 20070529
  Receipt Date: 20070529
  Transmission Date: 20071010
  Serious: Yes (Other)
  Sender: FDA-Public Use
  Company Number: None

PATIENT
  Age: 43 Year
  Sex: Female
  Weight: 50.8029 kg

DRUGS (4)
  1. MAGNEVIST [Suspect]
     Indication: BREAST CANCER
     Dosage: 20CC 2X,SEE DATES IV BOLUS
     Route: 040
  2. MAGNEVIST [Suspect]
     Indication: DIAGNOSTIC PROCEDURE
     Dosage: 20CC 2X,SEE DATES IV BOLUS
     Route: 040
  3. TAMOXIFEN 20MG [Suspect]
     Indication: DIAGNOSTIC PROCEDURE
  4. DIMEGLUMINE -GADOLINIUM- [Concomitant]

REACTIONS (7)
  - DIZZINESS [None]
  - DRUG HYPERSENSITIVITY [None]
  - DYSPNOEA [None]
  - MALAISE [None]
  - PALPITATIONS [None]
  - PHLEBITIS [None]
  - PULSE PRESSURE INCREASED [None]
